FAERS Safety Report 12046420 (Version 11)
Quarter: 2018Q3

REPORT INFORMATION
  Report Type: Report from Study
  Country: CA (occurrence: CA)
  Receive Date: 20160209
  Receipt Date: 20180730
  Transmission Date: 20181010
  Serious: Yes (Hospitalization)
  Sender: FDA-Public Use
  Company Number: CA-ROCHE-1702606

PATIENT
  Age: 59 Year
  Sex: Female
  Weight: 64.4 kg

DRUGS (48)
  1. NEUPOGEN [Suspect]
     Active Substance: FILGRASTIM
     Indication: PRODUCT USED FOR UNKNOWN INDICATION
     Route: 058
     Dates: start: 20160126, end: 20160204
  2. NEULASTA [Concomitant]
     Active Substance: PEGFILGRASTIM
     Route: 065
     Dates: start: 20160508, end: 20160508
  3. ALLOPURINOL. [Concomitant]
     Active Substance: ALLOPURINOL
     Route: 048
     Dates: start: 20160118, end: 20160217
  4. ACICLOVIR [Concomitant]
     Active Substance: ACYCLOVIR
     Route: 048
     Dates: start: 20160118
  5. ACETAMINOPHEN. [Concomitant]
     Active Substance: ACETAMINOPHEN
     Route: 048
     Dates: start: 20161223, end: 20161224
  6. FLUDARABINE [Suspect]
     Active Substance: FLUDARABINE PHOSPHATE
     Dosage: (C3D1: 30/MAR/2016), (C3D2: 31/MAR/2016), (C3D3: 01/APR/2016)
     Route: 042
  7. TAZOCIN [Concomitant]
     Active Substance: PIPERACILLIN SODIUM\TAZOBACTAM SODIUM
     Route: 042
     Dates: start: 20161223, end: 20161223
  8. CIPRO [Concomitant]
     Active Substance: CIPROFLOXACIN HYDROCHLORIDE
     Route: 048
     Dates: start: 20170301, end: 20170308
  9. FLUDARABINE [Suspect]
     Active Substance: FLUDARABINE PHOSPHATE
     Dosage: (C4D1: 04/MAY/2016), (C4D2: 05/MAY/2016), (C4D3: 06/MAY/2016),
     Route: 042
  10. FLUDARABINE [Suspect]
     Active Substance: FLUDARABINE PHOSPHATE
     Dosage: (C5D1: 08/JUN/2016), (C5D2: 09/JUN/2016), (C5D3: 10/JUN/2016)
     Route: 042
  11. MONTELUKAST [Concomitant]
     Active Substance: MONTELUKAST SODIUM
     Dosage: 12 HOUR AND 1 HOUR BEFORE C1D1 DOSE
     Route: 048
     Dates: start: 20160118, end: 20160119
  12. DEXAMETHASONE. [Concomitant]
     Active Substance: DEXAMETHASONE
     Route: 042
     Dates: start: 20160118, end: 20160118
  13. CALCIUM CARBONATE. [Concomitant]
     Active Substance: CALCIUM CARBONATE
     Route: 048
     Dates: start: 20160127, end: 20160130
  14. OBINUTUZUMAB. [Suspect]
     Active Substance: OBINUTUZUMAB
     Dosage: C1D2. TEMPORARILY INTERRUPTED ON 26/JAN/2016.?INFUSION RATE:400
     Route: 042
     Dates: start: 20160120, end: 20160120
  15. OBINUTUZUMAB. [Suspect]
     Active Substance: OBINUTUZUMAB
     Dosage: INFUSION RATE:400?C3D1
     Route: 042
     Dates: start: 20160330, end: 20160330
  16. OBINUTUZUMAB. [Suspect]
     Active Substance: OBINUTUZUMAB
     Dosage: INFUSION RATE:400?C4D1
     Route: 042
     Dates: start: 20160504, end: 20160504
  17. CYCLOPHOSPHAMIDE. [Suspect]
     Active Substance: CYCLOPHOSPHAMIDE
     Indication: CHRONIC LYMPHOCYTIC LEUKAEMIA
     Dosage: (C1D1: 19/JAN/2016) (C1D2: 20/JAN/2016) (C1D3: 21/JAN/2016)
     Route: 042
     Dates: start: 20160119, end: 20160119
  18. DEMEROL [Concomitant]
     Active Substance: MEPERIDINE HYDROCHLORIDE
     Route: 042
     Dates: start: 20160119, end: 20160119
  19. PACKED RED BLOOD CELLS [Concomitant]
     Active Substance: HUMAN RED BLOOD CELL
     Route: 042
     Dates: start: 20160121, end: 20160121
  20. AVAMYS [Concomitant]
     Active Substance: FLUTICASONE FUROATE
     Dosage: 2 SPARYS
     Route: 045
     Dates: start: 20160118, end: 20160201
  21. OBINUTUZUMAB. [Suspect]
     Active Substance: OBINUTUZUMAB
     Indication: CHRONIC LYMPHOCYTIC LEUKAEMIA
     Dosage: C1D1 TEMPORARILY INTERRUPTED ON 26/JAN/2016 DUE TO INFUSION RELATED REACTION?INFUSION RATE:12.5
     Route: 042
     Dates: start: 20160119, end: 20160119
  22. OBINUTUZUMAB. [Suspect]
     Active Substance: OBINUTUZUMAB
     Dosage: INFUSION RATE:400?C1D15
     Route: 042
     Dates: start: 20160217, end: 20160217
  23. OBINUTUZUMAB. [Suspect]
     Active Substance: OBINUTUZUMAB
     Dosage: INFUSION RATE:400?C2D1
     Route: 042
     Dates: start: 20160302, end: 20160302
  24. FLUDARABINE [Suspect]
     Active Substance: FLUDARABINE PHOSPHATE
     Indication: CHRONIC LYMPHOCYTIC LEUKAEMIA
     Dosage: C1D1
     Route: 042
     Dates: start: 20160119, end: 20160119
  25. FLUDARABINE [Suspect]
     Active Substance: FLUDARABINE PHOSPHATE
     Dosage: C1D2
     Route: 042
     Dates: start: 20160120, end: 20160120
  26. FLUDARABINE [Suspect]
     Active Substance: FLUDARABINE PHOSPHATE
     Dosage: C1D3
     Route: 042
     Dates: start: 20160121, end: 20160121
  27. FLUDARABINE [Suspect]
     Active Substance: FLUDARABINE PHOSPHATE
     Dosage: (C6D1: 05/JUL/2016), (C6D2: 06/JUL/2016), (C6D3: 07/JUL/2016)
     Route: 042
  28. CYCLOPHOSPHAMIDE. [Suspect]
     Active Substance: CYCLOPHOSPHAMIDE
     Dosage: (C2D1:02/MAR/2016) (C2D2:03/MAR/2016) (C2D3:04/MAR/2016)
     Route: 042
     Dates: start: 20160120, end: 20160120
  29. CYCLOPHOSPHAMIDE. [Suspect]
     Active Substance: CYCLOPHOSPHAMIDE
     Dosage: (C3D1: 30/MAR/2016), (C3D2: 31/MAR/2016), (C3D3: 01/APR/2016)
     Route: 042
     Dates: start: 20160121, end: 20160121
  30. CYCLOPHOSPHAMIDE. [Suspect]
     Active Substance: CYCLOPHOSPHAMIDE
     Dosage: (C6D1: 05/JUL/2016), (C6D2: 06/JUL/2016), (C6D3: 07/JUL/2016)
     Route: 042
  31. NEULASTA [Concomitant]
     Active Substance: PEGFILGRASTIM
     Route: 065
     Dates: start: 20160612, end: 20160612
  32. CODEINE [Concomitant]
     Active Substance: CODEINE
     Route: 048
     Dates: start: 20161224, end: 20161224
  33. OBINUTUZUMAB. [Suspect]
     Active Substance: OBINUTUZUMAB
     Dosage: INFUSION RATE: 400?C1D8
     Route: 042
     Dates: start: 20160209, end: 20160209
  34. OBINUTUZUMAB. [Suspect]
     Active Substance: OBINUTUZUMAB
     Dosage: INFUSION RATE:400?C6D1
     Route: 042
     Dates: start: 20160705, end: 20160705
  35. CYCLOPHOSPHAMIDE. [Suspect]
     Active Substance: CYCLOPHOSPHAMIDE
     Dosage: (C4D1: 04/MAY/2016), (C4D2: 05/MAY/2016), (C4D3: 06/MAY/2016)
     Route: 042
  36. NEULASTA [Concomitant]
     Active Substance: PEGFILGRASTIM
     Route: 065
     Dates: start: 20160306, end: 20160306
  37. DEXAMETHASONE. [Concomitant]
     Active Substance: DEXAMETHASONE
     Dosage: PRE?CHEMOTHERAPY DAY 1 AND DAY 2
     Route: 042
     Dates: start: 20160119
  38. DEXAMETHASONE. [Concomitant]
     Active Substance: DEXAMETHASONE
     Dosage: DAY 3?5
     Route: 048
     Dates: start: 20160121
  39. TAZOCIN [Concomitant]
     Active Substance: PIPERACILLIN SODIUM\TAZOBACTAM SODIUM
     Route: 042
     Dates: start: 20161223, end: 20161224
  40. FLUDARABINE [Suspect]
     Active Substance: FLUDARABINE PHOSPHATE
     Dosage: (C2D1:02/MAR/2016) (C2D2:03/MAR/2016) (C2D3:04/MAR/2016)
     Route: 042
  41. NEUPOGEN [Suspect]
     Active Substance: FILGRASTIM
     Route: 065
     Dates: start: 20170425, end: 20170430
  42. ACETAMINOPHEN. [Concomitant]
     Active Substance: ACETAMINOPHEN
     Dosage: PRE?OBINUTUZUMAB
     Route: 048
     Dates: start: 20160119, end: 20160119
  43. FUROSEMIDE SODIUM [Concomitant]
     Active Substance: FUROSEMIDE SODIUM
     Route: 042
     Dates: start: 20160121, end: 20160121
  44. OBINUTUZUMAB. [Suspect]
     Active Substance: OBINUTUZUMAB
     Dosage: INFUSION RATE:400?C5D1
     Route: 042
     Dates: start: 20160608, end: 20160608
  45. CYCLOPHOSPHAMIDE. [Suspect]
     Active Substance: CYCLOPHOSPHAMIDE
     Dosage: (C5D1: 08/JUN/2016), (C5D2: 09/JUN/2016), (C5D3: 10/JUN/2016)
     Route: 042
  46. NEULASTA [Concomitant]
     Active Substance: PEGFILGRASTIM
     Route: 065
     Dates: start: 20160404, end: 20160404
  47. SEPTRA DS [Concomitant]
     Active Substance: SULFAMETHOXAZOLE\TRIMETHOPRIM
     Dosage: 160/800MG EVERY MONDAY, WEDNESDAY AND FRIDAY
     Route: 048
     Dates: start: 20160118
  48. TAZOCIN [Concomitant]
     Active Substance: PIPERACILLIN SODIUM\TAZOBACTAM SODIUM
     Route: 042
     Dates: start: 20160127, end: 20160127

REACTIONS (3)
  - Febrile neutropenia [Recovered/Resolved]
  - Febrile neutropenia [Recovered/Resolved with Sequelae]
  - Influenza [Recovered/Resolved]

NARRATIVE: CASE EVENT DATE: 20160126
